FAERS Safety Report 4675320-6 (Version None)
Quarter: 2005Q2

REPORT INFORMATION
  Report Type: 
  Country: None (occurrence: None)
  Receive Date: 20050525
  Receipt Date: 20050517
  Transmission Date: 20051028
  Serious: Yes (Hospitalization)
  Sender: FDA-Public Use
  Company Number: 2005-05-0849

PATIENT
  Age: 44 Year
  Sex: Female
  Weight: 59 kg

DRUGS (3)
  1. TEMODAL [Suspect]
     Indication: GLIOMA
     Dosage: 75 MG/M^2 ORAL
     Route: 048
     Dates: start: 20050313, end: 20050320
  2. PROZAC [Concomitant]
  3. DEPAKINE CHRONO (SODIUM VALPROATE) [Concomitant]

REACTIONS (1)
  - COLITIS [None]
